FAERS Safety Report 18221634 (Version 11)
Quarter: 2021Q4

REPORT INFORMATION
  Report Type: Spontaneous
  Country: US (occurrence: US)
  Receive Date: 20200902
  Receipt Date: 20211217
  Transmission Date: 20220303
  Serious: Yes (Other)
  Sender: FDA-Public Use
  Company Number: US-PFIZER INC-2020339298

PATIENT
  Age: 70 Year
  Sex: Female
  Weight: 63.5 kg

DRUGS (4)
  1. LYRICA [Suspect]
     Active Substance: PREGABALIN
     Indication: Back pain
     Dosage: 75 MG, THREE TIMES A DAY
     Route: 048
  2. LYRICA [Suspect]
     Active Substance: PREGABALIN
     Indication: Pain
     Dosage: 100 MG (TWO 50 MG CAPSULES), DAILY
  3. LYRICA [Suspect]
     Active Substance: PREGABALIN
     Indication: Fibromyalgia
     Dosage: 200 MG, THREE TIMES A DAY
     Route: 048
  4. LYRICA [Suspect]
     Active Substance: PREGABALIN
     Dosage: 150 MG, 3X/DAY

REACTIONS (20)
  - Neuropathy peripheral [Unknown]
  - Hallucination [Unknown]
  - Intracranial aneurysm [Unknown]
  - Blindness [Unknown]
  - Drug ineffective [Unknown]
  - Feeling abnormal [Unknown]
  - Dizziness [Unknown]
  - Fall [Unknown]
  - Gait disturbance [Unknown]
  - Fine motor skill dysfunction [Unknown]
  - Thinking abnormal [Unknown]
  - Fibromyalgia [Unknown]
  - Influenza [Unknown]
  - Somnolence [Unknown]
  - Diplopia [Unknown]
  - Insomnia [Unknown]
  - Fatigue [Unknown]
  - Hypersensitivity [Unknown]
  - Intentional product use issue [Unknown]
  - Malaise [Unknown]
